FAERS Safety Report 8190093-0 (Version None)
Quarter: 2012Q1

REPORT INFORMATION
  Report Type: 
  Country: None (occurrence: None)
  Receive Date: 20120307
  Receipt Date: 20120307
  Transmission Date: 20120608
  Serious: Yes (Life-Threatening, Other)
  Sender: FDA-Public Use
  Company Number: None

PATIENT
  Age: 63 Year
  Sex: Female
  Weight: 57.152 kg

DRUGS (1)
  1. BACLOFEN [Suspect]
     Indication: MUSCLE SPASMS
     Dosage: 10 MG
     Route: 048
     Dates: start: 20020101, end: 20120202

REACTIONS (6)
  - PARKINSONISM [None]
  - MOVEMENT DISORDER [None]
  - PARKINSON'S DISEASE [None]
  - PAIN [None]
  - MULTIPLE SCLEROSIS [None]
  - ANXIETY [None]
